FAERS Safety Report 6900341-X (Version None)
Quarter: 2010Q3

REPORT INFORMATION
  Report Type: 
  Country: None (occurrence: None)
  Receive Date: 20100708
  Receipt Date: 20100129
  Transmission Date: 20110219
  Serious: Yes (Other)
  Sender: FDA-Public Use
  Company Number: 2010012470

PATIENT
  Age: 45 Year
  Sex: Male
  Weight: 68 kg

DRUGS (5)
  1. CHANTIX [Suspect]
     Indication: SMOKING CESSATION THERAPY
     Dosage: 0.5 MG, ORAL
     Route: 048
     Dates: start: 20091101, end: 20091101
  2. MS CONTIN [Concomitant]
  3. EFFEXOR [Concomitant]
  4. LAMICTAL [Concomitant]
  5. BACTRIM [Concomitant]

REACTIONS (2)
  - DEPRESSION [None]
  - SUICIDAL IDEATION [None]
